FAERS Safety Report 20738877 (Version 12)
Quarter: 2025Q3

REPORT INFORMATION
  Report Type: Report from Study
  Country: CA (occurrence: CA)
  Receive Date: 20220422
  Receipt Date: 20250730
  Transmission Date: 20251020
  Serious: Yes (Hospitalization, Other)
  Sender: TAKEDA
  Company Number: CA-TAKEDA-2022TUS024111

PATIENT
  Sex: Male

DRUGS (13)
  1. TEDUGLUTIDE [Suspect]
     Active Substance: TEDUGLUTIDE
     Indication: Short-bowel syndrome
     Dosage: 3.75 MILLIGRAM, QD
     Dates: start: 20220331
  2. TEDUGLUTIDE [Suspect]
     Active Substance: TEDUGLUTIDE
     Dosage: 3.8 MILLIGRAM, QD
  3. TEDUGLUTIDE [Suspect]
     Active Substance: TEDUGLUTIDE
  4. TEDUGLUTIDE [Suspect]
     Active Substance: TEDUGLUTIDE
  5. FLUCONAZOLE [Suspect]
     Active Substance: FLUCONAZOLE
     Indication: Product used for unknown indication
  6. ADALIMUMAB [Concomitant]
     Active Substance: ADALIMUMAB
     Indication: Product used for unknown indication
  7. IMURAN [Concomitant]
     Active Substance: AZATHIOPRINE
     Indication: Product used for unknown indication
  8. CODEINE [Concomitant]
     Active Substance: CODEINE
     Indication: Product used for unknown indication
  9. POTASSIUM [Concomitant]
     Active Substance: POTASSIUM
     Indication: Product used for unknown indication
  10. MAGNESIUM [Concomitant]
     Active Substance: MAGNESIUM
     Indication: Product used for unknown indication
  11. BUDESONIDE [Concomitant]
     Active Substance: BUDESONIDE
  12. Metamucil sunrise [Concomitant]
  13. PREDNISONE [Concomitant]
     Active Substance: PREDNISONE
     Indication: Crohn^s disease

REACTIONS (27)
  - Vascular device infection [Not Recovered/Not Resolved]
  - Abscess [Unknown]
  - Stoma obstruction [Unknown]
  - Crohn^s disease [Not Recovered/Not Resolved]
  - Pyrexia [Recovered/Resolved]
  - Feeling hot [Unknown]
  - Memory impairment [Unknown]
  - Visual impairment [Unknown]
  - Poor venous access [Unknown]
  - Gastrointestinal stoma output decreased [Recovering/Resolving]
  - Diarrhoea [Unknown]
  - Weight increased [Unknown]
  - Blood pressure increased [Unknown]
  - Accidental exposure to product [Unknown]
  - Needle issue [Unknown]
  - Product quality issue [Unknown]
  - Product use issue [Unknown]
  - Product dose omission issue [Unknown]
  - Injection site scab [Unknown]
  - Injection site pruritus [Unknown]
  - C-reactive protein increased [Unknown]
  - Cough [Not Recovered/Not Resolved]
  - Device use issue [Unknown]
  - Blood potassium decreased [Not Recovered/Not Resolved]
  - Weight decreased [Recovering/Resolving]
  - Heart rate increased [Unknown]
  - Rash [Not Recovered/Not Resolved]

NARRATIVE: CASE EVENT DATE: 20220101
